FAERS Safety Report 25289172 (Version 3)
Quarter: 2025Q3

REPORT INFORMATION
  Report Type: Spontaneous
  Country: US (occurrence: US)
  Receive Date: 20250509
  Receipt Date: 20250818
  Transmission Date: 20251020
  Serious: Yes (Other)
  Sender: SANOFI AVENTIS
  Company Number: US-SA-2025SA132238

PATIENT
  Age: 77 Year
  Sex: Female

DRUGS (3)
  1. DUPIXENT [Suspect]
     Active Substance: DUPILUMAB
     Indication: Neurodermatitis
     Route: 058
     Dates: start: 202503, end: 202503
  2. DUPIXENT [Suspect]
     Active Substance: DUPILUMAB
     Dosage: 300 MG, QOW
     Route: 058
     Dates: start: 2025
  3. ZORYVE [Concomitant]
     Active Substance: ROFLUMILAST

REACTIONS (10)
  - Clostridium difficile infection [Unknown]
  - Basal cell carcinoma [Unknown]
  - Pain [Unknown]
  - Acne [Unknown]
  - Rash erythematous [Unknown]
  - Pruritus [Unknown]
  - Rebound effect [Unknown]
  - Neurodermatitis [Unknown]
  - Rash [Unknown]
  - Injection site pain [Unknown]

NARRATIVE: CASE EVENT DATE: 20250101
